FAERS Safety Report 18648513 (Version 7)
Quarter: 2022Q4

REPORT INFORMATION
  Report Type: Spontaneous
  Country: US (occurrence: US)
  Receive Date: 20201222
  Receipt Date: 20221115
  Transmission Date: 20230113
  Serious: Yes (Other)
  Sender: FDA-Public Use
  Company Number: US-PFIZER INC-2020504856

PATIENT
  Age: 42 Year
  Sex: Female

DRUGS (7)
  1. IBRANCE [Suspect]
     Active Substance: PALBOCICLIB
     Indication: Breast cancer
     Dosage: 1 TABLET ONCE DAILY, 3 WEEKS ON AND ONE WEEK OFF
     Route: 048
     Dates: start: 202010
  2. IBRANCE [Suspect]
     Active Substance: PALBOCICLIB
     Dosage: 1 TABLET DAILY FOR 3 WEEKS ON AND ONE WEEK OFF
     Route: 048
  3. IBRANCE [Suspect]
     Active Substance: PALBOCICLIB
     Dosage: ONCE DAILY ON DAYS 1 TO 21, FOLLOWED BY 7 DAYS OF REST
  4. IBRANCE [Suspect]
     Active Substance: PALBOCICLIB
     Dosage: 100 MG, ONCE DAILY ON DAYS 1 TO 21, FOLLOWED BY 7 DAYS OF REST
     Route: 048
  5. LETROZOLE [Concomitant]
     Active Substance: LETROZOLE
     Dosage: UNK
  6. CALCIUM [Concomitant]
     Active Substance: CALCIUM
     Dosage: UNK
  7. HYDROCODONE BITARTRATE [Concomitant]
     Active Substance: HYDROCODONE BITARTRATE
     Dosage: UNK

REACTIONS (12)
  - Haematochezia [Unknown]
  - Menstruation irregular [Unknown]
  - Stress [Unknown]
  - Alopecia [Unknown]
  - Epistaxis [Unknown]
  - Pain in extremity [Unknown]
  - Hypoaesthesia [Unknown]
  - Stomatitis [Unknown]
  - Arthralgia [Unknown]
  - Toothache [Unknown]
  - Back pain [Unknown]
  - Neoplasm progression [Unknown]

NARRATIVE: CASE EVENT DATE: 20201112
